FAERS Safety Report 10807447 (Version 1)
Quarter: 2015Q1

REPORT INFORMATION
  Report Type: Report from Study
  Country: US (occurrence: US)
  Receive Date: 20150217
  Receipt Date: 20150217
  Transmission Date: 20150721
  Serious: No
  Sender: FDA-Public Use
  Company Number: US-ABBVIE-10P-163-0684358-00

PATIENT
  Age: 35 Year
  Sex: Female
  Weight: 47.67 kg

DRUGS (16)
  1. HUMIRA [Suspect]
     Active Substance: ADALIMUMAB
     Dosage: 1.3 A MONTH
     Dates: start: 20100202, end: 20100303
  2. CORTICOSTEROIDS [Concomitant]
     Active Substance: CORTICOSTEROID NOS
     Indication: PROPHYLAXIS
     Dosage: SHOT
     Dates: start: 20100104, end: 20100104
  3. COFFEE [Concomitant]
     Active Substance: ARABICA COFFEE BEAN\COFFEE BEAN
     Dosage: .5 SERVING 2.5 A WEEK
     Route: 048
     Dates: start: 20100116, end: 20100310
  4. HUMIRA [Suspect]
     Active Substance: ADALIMUMAB
     Dosage: DAY 1
     Dates: start: 20090909, end: 20090909
  5. CORTICOSTEROIDS [Concomitant]
     Active Substance: CORTICOSTEROID NOS
     Dates: start: 20100105, end: 20100105
  6. COFFEE [Concomitant]
     Active Substance: ARABICA COFFEE BEAN\COFFEE BEAN
     Indication: PRODUCT USED FOR UNKNOWN INDICATION
     Dosage: .5 SERVING A DAY
     Route: 048
     Dates: start: 20090630, end: 20090801
  7. INFLUENZA H1N1 VACCINE NOS [Concomitant]
     Active Substance: INFLUENZA VIRUS VACCINE, SWINE
     Indication: INFLUENZA IMMUNISATION
     Dosage: SHOT
     Dates: start: 20091112, end: 20091112
  8. HUMIRA [Suspect]
     Active Substance: ADALIMUMAB
     Indication: CROHN^S DISEASE
     Dosage: DAY 1
     Dates: start: 20090826, end: 20090826
  9. TUMS [Concomitant]
     Active Substance: CALCIUM CARBONATE
     Indication: DYSPEPSIA
     Dosage: 2 PILL
     Route: 048
     Dates: start: 20100127, end: 20100310
  10. COFFEE [Concomitant]
     Active Substance: ARABICA COFFEE BEAN\COFFEE BEAN
     Dosage: .5 SERVING 4 A WEEK
     Route: 048
     Dates: start: 20090904, end: 20100115
  11. WINE [Concomitant]
     Active Substance: WINE
     Dosage: 1 SERVING
     Route: 048
     Dates: start: 20090815, end: 20100210
  12. HUMIRA [Suspect]
     Active Substance: ADALIMUMAB
     Dates: start: 20090923, end: 20100127
  13. PRENATAL VITAMINS [Concomitant]
     Active Substance: VITAMINS
     Indication: VITAMIN SUPPLEMENTATION
     Dosage: PILL
     Route: 048
     Dates: start: 20090806, end: 20100310
  14. FOLIC ACID. [Concomitant]
     Active Substance: FOLIC ACID
     Indication: PRODUCT USED FOR UNKNOWN INDICATION
     Route: 048
     Dates: start: 20090813, end: 20100310
  15. WINE [Concomitant]
     Active Substance: WINE
     Indication: PRODUCT USED FOR UNKNOWN INDICATION
     Dosage: 2.5 SERVING 5 A WEEK
     Route: 048
     Dates: start: 20090630, end: 20090801
  16. INFLUENZA VACCINE [Concomitant]
     Active Substance: INFLUENZA VIRUS VACCINE
     Indication: INFLUENZA IMMUNISATION
     Dosage: SHOT
     Dates: start: 20091112, end: 20091112

REACTIONS (2)
  - Ultrasound scan abnormal [Recovered/Resolved]
  - Glucose tolerance test abnormal [Recovered/Resolved]

NARRATIVE: CASE EVENT DATE: 20091111
